FAERS Safety Report 18363694 (Version 2)
Quarter: 2020Q4

REPORT INFORMATION
  Report Type: Spontaneous
  Country: IT (occurrence: IT)
  Receive Date: 20201009
  Receipt Date: 20201217
  Transmission Date: 20210114
  Serious: Yes (Hospitalization, Other)
  Sender: FDA-Public Use
  Company Number: IT-AUROBINDO-AUR-APL-2020-051255

PATIENT
  Age: 18 Year
  Sex: Female

DRUGS (2)
  1. QUETIAPINE FILM-COATED TABLET [Suspect]
     Active Substance: QUETIAPINE
     Indication: PRODUCT USED FOR UNKNOWN INDICATION
     Dosage: 1400 MILLIGRAM (TOTAL)
     Route: 048
     Dates: start: 20181109, end: 20181109
  2. LORAZEPAM TABLETS [Suspect]
     Active Substance: LORAZEPAM
     Indication: PRODUCT USED FOR UNKNOWN INDICATION
     Dosage: 20 MILLIGRAM (TOTAL)
     Route: 048
     Dates: start: 20181109, end: 20181109

REACTIONS (5)
  - Drug abuse [Recovering/Resolving]
  - Bradyphrenia [Recovering/Resolving]
  - Gait disturbance [Recovering/Resolving]
  - Sedation [Recovering/Resolving]
  - Balance disorder [Recovering/Resolving]

NARRATIVE: CASE EVENT DATE: 20181109
